FAERS Safety Report 9961600 (Version 2)
Quarter: 2014Q1

REPORT INFORMATION
  Report Type: Report from Study
  Country: US (occurrence: US)
  Receive Date: 20140305
  Receipt Date: 20140305
  Transmission Date: 20141002
  Serious: No
  Sender: FDA-Public Use
  Company Number: US-ABBVIE-13P-163-1106524-00

PATIENT
  Age: 42 Year
  Sex: Female

DRUGS (6)
  1. HUMIRA [Suspect]
     Indication: RHEUMATOID ARTHRITIS
     Dates: start: 20130614
  2. AMITRIPTYLINE [Concomitant]
     Indication: RHEUMATOID ARTHRITIS
  3. DEXILANT [Concomitant]
     Indication: GASTROOESOPHAGEAL REFLUX DISEASE
  4. MOTRIN [Concomitant]
     Indication: PAIN
     Dosage: 2-3 TABS 2-3 TIMES A DAY
  5. FLEXERIL [Concomitant]
     Indication: INSOMNIA
     Dosage: AT HOUR OF SLEEP
  6. MILK OF MAGNESIA [Concomitant]
     Indication: CONSTIPATION

REACTIONS (5)
  - Feeling cold [Recovering/Resolving]
  - Hypoaesthesia [Recovering/Resolving]
  - Paraesthesia [Recovering/Resolving]
  - Hypoaesthesia [Unknown]
  - Paraesthesia [Unknown]
